FAERS Safety Report 20589698 (Version 1)
Quarter: 2022Q1

REPORT INFORMATION
  Report Type: Spontaneous
  Country: US (occurrence: None)
  Receive Date: 20220311
  Receipt Date: 20220311
  Transmission Date: 20220424
  Serious: No
  Sender: FDA-Public Use
  Company Number: None

PATIENT
  Sex: Male
  Weight: 103.7 kg

DRUGS (22)
  1. INLYTA [Suspect]
     Active Substance: AXITINIB
     Indication: Renal cancer
     Dosage: OTHER FREQUENCY : QD MON-FRI;?
     Route: 048
  2. OMEPRAZOLE [Concomitant]
     Active Substance: OMEPRAZOLE
  3. CYCLOBENZAPRINE [Concomitant]
     Active Substance: CYCLOBENZAPRINE
  4. VITAMIN C [Concomitant]
     Active Substance: ASCORBIC ACID
  5. ALLOPURINOL [Concomitant]
     Active Substance: ALLOPURINOL
  6. MELATONIN [Concomitant]
     Active Substance: MELATONIN
  7. LORAZEPAM [Concomitant]
     Active Substance: LORAZEPAM
  8. BENADRYL [Concomitant]
     Active Substance: DIPHENHYDRAMINE HYDROCHLORIDE
  9. MYLANTA [Concomitant]
     Active Substance: ALUMINUM HYDROXIDE\DIMETHICONE\MAGNESIUM HYDROXIDE
  10. POTASSIUM CHLORIDE [Concomitant]
     Active Substance: POTASSIUM CHLORIDE
  11. ZYRTEC [Concomitant]
     Active Substance: CETIRIZINE HYDROCHLORIDE
  12. DOCUSATE [Concomitant]
     Active Substance: DOCUSATE
  13. FOLIC ACID [Concomitant]
     Active Substance: FOLIC ACID
  14. LACTULOSE [Concomitant]
     Active Substance: LACTULOSE
  15. GABAPENTIN [Concomitant]
     Active Substance: GABAPENTIN
  16. DILAUDID [Concomitant]
     Active Substance: HYDROMORPHONE HYDROCHLORIDE
  17. FENTANYL [Concomitant]
     Active Substance: FENTANYL
  18. ATIVAN [Concomitant]
     Active Substance: LORAZEPAM
  19. LASIX [Concomitant]
     Active Substance: FUROSEMIDE
  20. THIAMINE [Concomitant]
     Active Substance: THIAMINE
  21. REMERON [Concomitant]
     Active Substance: MIRTAZAPINE
  22. MS CONTIN [Concomitant]
     Active Substance: MORPHINE SULFATE

REACTIONS (1)
  - Haemorrhage [None]
